FAERS Safety Report 10715946 (Version 1)
Quarter: 2015Q1

REPORT INFORMATION
  Report Type: Spontaneous
  Country: US (occurrence: US)
  Receive Date: 20150116
  Receipt Date: 20150116
  Transmission Date: 20150721
  Serious: No
  Sender: FDA-Public Use
  Company Number: US-PFIZER INC-2015015219

PATIENT
  Age: 9 Year
  Sex: Female
  Weight: 29 kg

DRUGS (2)
  1. GEODON [Suspect]
     Active Substance: ZIPRASIDONE HYDROCHLORIDE\ZIPRASIDONE MESYLATE
     Indication: MOOD SWINGS
     Dosage: 20 MG, 1X/DAY AT BEDTIME
     Route: 048
     Dates: start: 20150105, end: 20150105
  2. SEROQUEL [Concomitant]
     Active Substance: QUETIAPINE FUMARATE
     Indication: MOOD SWINGS
     Dosage: 12.5 MG, DAILY
     Route: 048
     Dates: start: 20141217, end: 20150105

REACTIONS (2)
  - Dysphagia [Recovered/Resolved]
  - Product use issue [Recovered/Resolved]

NARRATIVE: CASE EVENT DATE: 20150105
